FAERS Safety Report 7397117-9 (Version None)
Quarter: 2011Q2

REPORT INFORMATION
  Report Type: 
  Country: None (occurrence: None)
  Receive Date: 20110406
  Receipt Date: 20110401
  Transmission Date: 20111010
  Serious: Yes (Other)
  Sender: FDA-Public Use
  Company Number: A0921103A

PATIENT
  Age: 51 Year
  Sex: Female

DRUGS (3)
  1. WELLBUTRIN SR [Suspect]
     Route: 065
  2. WELLBUTRIN SR [Suspect]
     Indication: DEPRESSION
     Dosage: 200MG PER DAY
     Route: 048
     Dates: start: 20110318
  3. NO CONCURRENT MEDICATION [Concomitant]

REACTIONS (17)
  - DEPERSONALISATION [None]
  - TREMOR [None]
  - HOT FLUSH [None]
  - VAGINAL HAEMORRHAGE [None]
  - INSOMNIA [None]
  - COMPULSIONS [None]
  - WITHDRAWAL SYNDROME [None]
  - ANXIETY [None]
  - HEART RATE INCREASED [None]
  - MUSCLE TWITCHING [None]
  - DIZZINESS [None]
  - DRY MOUTH [None]
  - RESTLESSNESS [None]
  - RESTLESS LEGS SYNDROME [None]
  - DRUG ADMINISTRATION ERROR [None]
  - FEAR [None]
  - PALPITATIONS [None]
